FAERS Safety Report 6639679-2 (Version None)
Quarter: 2010Q1

REPORT INFORMATION
  Report Type: 
  Country: None (occurrence: None)
  Receive Date: 20100301
  Receipt Date: 20090828
  Transmission Date: 20100710
  Serious: Yes (Hospitalization)
  Sender: FDA-Public Use
  Company Number: RB-19869-2009

PATIENT
  Sex: Female

DRUGS (3)
  1. SUBOXONE [Suspect]
     Indication: DRUG DEPENDENCE
     Dosage: 2 MG QD SUBLINGUAL, 1 MG QD SUBLINGUAL
     Route: 060
     Dates: start: 20070401
  2. XANAX [Suspect]
     Indication: DRUG USE FOR UNKNOWN INDICATION
  3. KLONOPIN [Suspect]
     Indication: DRUG USE FOR UNKNOWN INDICATION

REACTIONS (1)
  - OVERDOSE [None]
